FAERS Safety Report 16557553 (Version 1)
Quarter: 2019Q3

REPORT INFORMATION
  Report Type: Spontaneous
  Country: PL (occurrence: PL)
  Receive Date: 20190711
  Receipt Date: 20190711
  Transmission Date: 20191004
  Serious: Yes (Other)
  Sender: FDA-Public Use
  Company Number: PHHY2019PL154721

PATIENT
  Sex: Female

DRUGS (2)
  1. AZITROLEK [Suspect]
     Active Substance: AZITHROMYCIN ANHYDROUS
     Indication: TRACHEITIS
     Dosage: 500 MG, UNK
     Route: 065
  2. AZITROLEK [Suspect]
     Active Substance: AZITHROMYCIN ANHYDROUS
     Indication: BRONCHITIS

REACTIONS (10)
  - Diarrhoea [Unknown]
  - Asthenia [Unknown]
  - Visual impairment [Unknown]
  - Body temperature decreased [Unknown]
  - Tinnitus [Unknown]
  - Dry mouth [Unknown]
  - Dizziness [Unknown]
  - Decreased appetite [Unknown]
  - Abdominal pain [Unknown]
  - Somnolence [Unknown]
